FAERS Safety Report 5838607-7 (Version None)
Quarter: 2008Q3

REPORT INFORMATION
  Report Type: 
  Country: None (occurrence: None)
  Receive Date: 20080808
  Receipt Date: 20080529
  Transmission Date: 20090109
  Serious: No
  Sender: FDA-Public Use
  Company Number: A0730190A

PATIENT
  Age: 75 Year
  Sex: Female

DRUGS (8)
  1. ALTABAX [Suspect]
     Dosage: 1APP UNKNOWN
     Route: 061
     Dates: start: 20080527, end: 20080527
  2. KEFLEX [Concomitant]
  3. MAXZIDE [Concomitant]
  4. NORVASC [Concomitant]
  5. ASPIRIN [Concomitant]
  6. BENADRYL [Concomitant]
  7. XALATAN [Concomitant]
  8. TIMOPTIC [Concomitant]

REACTIONS (3)
  - BURNING SENSATION [None]
  - PAIN [None]
  - TENDERNESS [None]
